FAERS Safety Report 10674846 (Version 12)
Quarter: 2018Q4

REPORT INFORMATION
  Report Type: Report from Study
  Country: US (occurrence: US)
  Receive Date: 20141224
  Receipt Date: 20181210
  Transmission Date: 20190204
  Serious: Yes (Other)
  Sender: FDA-Public Use
  Company Number: US-SA-2014SA092537

PATIENT
  Age: 69 Year
  Sex: Female
  Weight: 62.59 kg

DRUGS (17)
  1. ALPRAZOLAM. [Concomitant]
     Active Substance: ALPRAZOLAM
     Indication: BLOOD PRESSURE MEASUREMENT
     Dosage: 5 MG/20MG
  2. VITAMIN D3 [Concomitant]
     Active Substance: CHOLECALCIFEROL
     Dosage: 2300 IU,UNK
  3. ZOLOFT [Concomitant]
     Active Substance: SERTRALINE HYDROCHLORIDE
     Indication: DEPRESSION
     Dosage: 100 MG,UNK
  4. CALCIUM [Concomitant]
     Active Substance: CALCIUM
     Dosage: 750 MG,UNK
  5. MAGNESIUM [Concomitant]
     Active Substance: MAGNESIUM
     Dosage: 150 MG,UNK
  6. BIOTIN [Concomitant]
     Active Substance: BIOTIN
     Dosage: 1000 UG,UNK
  7. BACTRIM [Concomitant]
     Active Substance: SULFAMETHOXAZOLE\TRIMETHOPRIM
     Dosage: UNK
  8. OXYBUTYNIN. [Concomitant]
     Active Substance: OXYBUTYNIN CHLORIDE
     Indication: INCONTINENCE
     Dosage: 5 MG,UNK
  9. RALOXIFENE HYDROCHLORIDE. [Concomitant]
     Active Substance: RALOXIFENE HYDROCHLORIDE
     Indication: MINERAL SUPPLEMENTATION
     Dosage: 60 MG,UNK
  10. LATANOPROST. [Concomitant]
     Active Substance: LATANOPROST
     Indication: GLAUCOMA
     Dosage: 5 %,UNK
  11. DOXYCYCLINE HYCLATE. [Concomitant]
     Active Substance: DOXYCYCLINE HYCLATE
     Dosage: 100 MG,UNK
     Dates: start: 20161107, end: 20161201
  12. TERIFLUNOMIDE. [Suspect]
     Active Substance: TERIFLUNOMIDE
     Indication: MULTIPLE SCLEROSIS
     Dosage: 14 MG,QD
     Route: 048
     Dates: start: 20140702
  13. TIMOLOL. [Concomitant]
     Active Substance: TIMOLOL
     Indication: GLAUCOMA
     Dosage: 25 %,UNK
  14. TERIFLUNOMIDE. [Suspect]
     Active Substance: TERIFLUNOMIDE
     Dosage: 14 MG,QD
     Route: 048
     Dates: start: 201508
  15. SIMVASTATIN. [Concomitant]
     Active Substance: SIMVASTATIN
     Dosage: 20 MG,UNK
  16. POTASSIUM [Concomitant]
     Active Substance: POTASSIUM
     Dosage: 10 MEQ,UNK
  17. ESOMEPRAZOLE. [Concomitant]
     Active Substance: ESOMEPRAZOLE MAGNESIUM
     Dosage: 40 MG,UNK

REACTIONS (19)
  - Oesophagitis [Not Recovered/Not Resolved]
  - Hemiparesis [Unknown]
  - Foot fracture [Not Recovered/Not Resolved]
  - Fatigue [Recovered/Resolved]
  - Memory impairment [Not Recovered/Not Resolved]
  - Crying [Recovered/Resolved]
  - Ocular discomfort [Not Recovered/Not Resolved]
  - Nail disorder [Recovered/Resolved]
  - Limb discomfort [Recovered/Resolved]
  - Depression [Recovered/Resolved]
  - Dry mouth [Unknown]
  - Oral herpes [Unknown]
  - Insomnia [Unknown]
  - Bronchitis [Not Recovered/Not Resolved]
  - Fall [Unknown]
  - Chapped lips [Unknown]
  - Muscular weakness [Not Recovered/Not Resolved]
  - Feeling abnormal [Recovered/Resolved]
  - Gait disturbance [Unknown]

NARRATIVE: CASE EVENT DATE: 2014
